FAERS Safety Report 7268983-2 (Version None)
Quarter: 2011Q1

REPORT INFORMATION
  Report Type: 
  Country: None (occurrence: None)
  Receive Date: 20110201
  Receipt Date: 20110118
  Transmission Date: 20110831
  Serious: Yes (Hospitalization, Other)
  Sender: FDA-Public Use
  Company Number: US-ELI_LILLY_AND_COMPANY-US201002007383

PATIENT
  Sex: Female

DRUGS (7)
  1. FORTEO [Suspect]
     Indication: OSTEOPOROSIS
     Dosage: 20 UG, DAILY (1/D)
     Route: 065
     Dates: start: 20090901
  2. NEXIUM [Concomitant]
     Dosage: 40 MG, DAILY (1/D)
     Route: 065
  3. EXFORGE /01634301/ [Concomitant]
     Dosage: UNK, DAILY (1/D)
     Route: 065
  4. LORAZEPAM [Concomitant]
     Dosage: UNK, 6/W
  5. ALLOPURINOL [Concomitant]
     Dosage: 100 MG, DAILY (1/D)
     Route: 065
  6. LORTAB [Concomitant]
     Indication: PAIN
     Dosage: UNK, AS NEEDED
     Route: 065
  7. RESTORIL [Concomitant]

REACTIONS (4)
  - DIARRHOEA [None]
  - CATARACT OPERATION [None]
  - INTERVERTEBRAL DISC DEGENERATION [None]
  - BACK PAIN [None]
